FAERS Safety Report 24744411 (Version 3)
Quarter: 2025Q1

REPORT INFORMATION
  Report Type: Spontaneous
  Country: DE (occurrence: DE)
  Receive Date: 20241217
  Receipt Date: 20250304
  Transmission Date: 20250408
  Serious: No
  Sender: PFIZER
  Company Number: DE-PFIZER INC-202400318750

PATIENT

DRUGS (1)
  1. NEISVAC-C [Suspect]
     Active Substance: MENINGOCOCCAL POLYSACCHARIDE VACCINE C
     Indication: Immunisation

REACTIONS (1)
  - Syringe issue [Unknown]
